FAERS Safety Report 4998513-7 (Version None)
Quarter: 2006Q2

REPORT INFORMATION
  Report Type: 
  Country: None (occurrence: None)
  Receive Date: 20060508
  Receipt Date: 20060424
  Transmission Date: 20061013
  Serious: Yes (Death)
  Sender: FDA-Public Use
  Company Number: 224510

PATIENT
  Age: 66 Year
  Sex: Male

DRUGS (3)
  1. MABTHERA (RITUXIMAB) CONC FOR SOLUTION FOR INFUSION [Suspect]
  2. VINCRISTINE [Suspect]
  3. CYCLOPHOSPHAMIDE [Suspect]

REACTIONS (2)
  - LIVER DISORDER [None]
  - T-CELL LYMPHOMA [None]
